FAERS Safety Report 19869045 (Version 1)
Quarter: 2021Q3

REPORT INFORMATION
  Report Type: Spontaneous
  Country: US (occurrence: US)
  Receive Date: 20210922
  Receipt Date: 20210922
  Transmission Date: 20211014
  Serious: No
  Sender: FDA-Public Use
  Company Number: US-PERRIGO-20US019047

PATIENT
  Age: 54 Year
  Sex: Female
  Weight: 54.42 kg

DRUGS (4)
  1. STEROIDS [Concomitant]
     Active Substance: UNSPECIFIED INGREDIENT
     Indication: DERMATITIS CONTACT
     Dosage: UNK (INJECTIONS)
     Route: 065
     Dates: start: 2020
  2. ANTIDEPRESSANTS [Concomitant]
     Active Substance: UNSPECIFIED INGREDIENT
     Indication: DEPRESSION
     Dosage: UNK
     Route: 065
  3. CLOBETASOL PROPIONATE. [Suspect]
     Active Substance: CLOBETASOL PROPIONATE
     Indication: DERMATITIS CONTACT
  4. CLOBETASOL PROPIONATE. [Suspect]
     Active Substance: CLOBETASOL PROPIONATE
     Indication: PRURITUS
     Dosage: SMALL AMOUNT, BID, PRN
     Route: 061
     Dates: start: 202003, end: 2020

REACTIONS (3)
  - Drug ineffective [Unknown]
  - Device delivery system issue [Unknown]
  - Wrong technique in product usage process [Recovered/Resolved]

NARRATIVE: CASE EVENT DATE: 202003
